FAERS Safety Report 8268038-4 (Version None)
Quarter: 2012Q2

REPORT INFORMATION
  Report Type: 
  Country: None (occurrence: None)
  Receive Date: 20120409
  Receipt Date: 20120406
  Transmission Date: 20120825
  Serious: Yes (Hospitalization)
  Sender: FDA-Public Use
  Company Number: GR-TEVA-260409ISR

PATIENT
  Sex: Male

DRUGS (8)
  1. ABIRATERONE ACETATE- BLINDED (ABIRATERONE ACETATE) / PLACEBO [Suspect]
     Indication: PROSTATE CANCER METASTATIC
     Route: 048
     Dates: start: 20091222
  2. TRIPTORELIN [Concomitant]
     Indication: HORMONE THERAPY
  3. PREDNISOLONE [Suspect]
     Indication: PROSTATE CANCER METASTATIC
     Route: 048
     Dates: start: 20090922
  4. LANSOPRAZOLE [Concomitant]
     Indication: GASTROINTESTINAL DISORDER THERAPY
     Dosage: 30 MICROGRAM;
     Route: 048
     Dates: start: 20080101
  5. ACETAMINOPHEN [Concomitant]
     Indication: ARTHRALGIA
     Route: 048
     Dates: start: 20091210
  6. TIOTROPIUM [Concomitant]
     Dosage: 18 MICROGRAM;
     Route: 055
     Dates: start: 19940101
  7. BUDESONIDE [Concomitant]
     Indication: CHRONIC OBSTRUCTIVE PULMONARY DISEASE
     Dosage: 400 MICROGRAM;
     Route: 055
     Dates: start: 19940101
  8. TRIPTORELIN [Concomitant]
     Indication: PROSTATE CANCER
     Route: 030
     Dates: start: 20091222

REACTIONS (3)
  - VOMITING [None]
  - FUNGAL OESOPHAGITIS [None]
  - GASTRITIS HAEMORRHAGIC [None]
